FAERS Safety Report 6414264-6 (Version None)
Quarter: 2009Q4

REPORT INFORMATION
  Report Type: 
  Country: None (occurrence: None)
  Receive Date: 20091026
  Receipt Date: 20091016
  Transmission Date: 20100525
  Serious: Yes (Death, Hospitalization)
  Sender: FDA-Public Use
  Company Number: US-PFIZER INC-2007049246

PATIENT
  Sex: Female
  Weight: 43.2 kg

DRUGS (8)
  1. AXITINIB [Suspect]
     Indication: GASTRIC CANCER
     Dosage: 5 MG 2XDAY TDD 10  MG
     Route: 048
     Dates: start: 20070420, end: 20070616
  2. IRINOTECAN HCL [Suspect]
     Indication: GASTRIC CANCER
     Dosage: 240 MG,EVERY 2 WEEKS
     Route: 042
     Dates: start: 20070509, end: 20070606
  3. FLUOROURACIL [Suspect]
     Indication: GASTRIC CANCER
     Dosage: 500 MG, QD EVERY TWO WEEKS
     Route: 042
     Dates: start: 20070509, end: 20070606
  4. FLUOROURACIL [Suspect]
     Dosage: 1525 MG, 2X/DAY EVERY TWO WEEKS
     Route: 042
     Dates: start: 20070509, end: 20070606
  5. FOLINIC ACID [Suspect]
     Indication: GASTRIC CANCER
     Dosage: 650 MG, QD EVERY 2 WEEKS
     Route: 042
     Dates: start: 20070418, end: 20070606
  6. LORTAB [Concomitant]
     Dosage: Q4 PRN
     Route: 048
     Dates: start: 20070409
  7. KYTRIL [Concomitant]
     Route: 048
     Dates: start: 20070511
  8. OCEAN NASAL SPRAY [Concomitant]
     Route: 045
     Dates: start: 20070521

REACTIONS (2)
  - ABDOMINAL PAIN [None]
  - RESPIRATORY FAILURE [None]
